FAERS Safety Report 7736734-0 (Version None)
Quarter: 2011Q3

REPORT INFORMATION
  Report Type: 
  Country: None (occurrence: None)
  Receive Date: 20110908
  Receipt Date: 20110901
  Transmission Date: 20111222
  Serious: Yes (Death, Other)
  Sender: FDA-Public Use
  Company Number: PHHY2011JP71255

PATIENT
  Age: 66 Year
  Sex: Female

DRUGS (5)
  1. NEDAPLATIN [Concomitant]
     Dosage: 02 COURSES
  2. CISPLATIN [Concomitant]
     Dosage: 6 COURSES
  3. SANDOSTATIN [Suspect]
     Indication: INTESTINAL OBSTRUCTION
     Dosage: 300 UG PER DAY
     Route: 058
     Dates: start: 20101012, end: 20101017
  4. PACLITAXEL [Concomitant]
     Dosage: 06 COURSES
     Dates: start: 20100730
  5. IRINOTECAN HCL [Concomitant]
     Dosage: 02 COURSES
     Dates: start: 20100730

REACTIONS (2)
  - BRADYCARDIA [None]
  - DEATH [None]
